FAERS Safety Report 16558098 (Version 1)
Quarter: 2019Q3

REPORT INFORMATION
  Report Type: Spontaneous
  Country: US (occurrence: US)
  Receive Date: 20190711
  Receipt Date: 20190711
  Transmission Date: 20191004
  Serious: No
  Sender: FDA-Public Use
  Company Number: US-APOTEX-2018AP026646

PATIENT
  Sex: Male

DRUGS (1)
  1. ATORVASTATIN CALCIUM. [Suspect]
     Active Substance: ATORVASTATIN CALCIUM
     Indication: PRODUCT USED FOR UNKNOWN INDICATION
     Dosage: UNK
     Route: 065

REACTIONS (8)
  - Vomiting [Unknown]
  - Pharyngeal swelling [Unknown]
  - Product colour issue [Unknown]
  - Feeling abnormal [Unknown]
  - Product physical issue [Unknown]
  - Malaise [Unknown]
  - Product taste abnormal [Unknown]
  - Product odour abnormal [Unknown]
